FAERS Safety Report 4779658-3 (Version None)
Quarter: 2005Q3

REPORT INFORMATION
  Report Type: 
  Country: None (occurrence: None)
  Receive Date: 20050914
  Receipt Date: 20050303
  Transmission Date: 20060218
  Serious: Yes (Death, Hospitalization)
  Sender: FDA-Public Use
  Company Number: 163-20785-05030131

PATIENT
  Age: 53 Year
  Sex: Male

DRUGS (16)
  1. THALOMID [Suspect]
     Indication: NON-HODGKIN'S LYMPHOMA
     Dosage: 200 MG, DAILY, ORAL
     Route: 048
     Dates: start: 20040527, end: 20040530
  2. THALOMID [Suspect]
     Indication: NON-HODGKIN'S LYMPHOMA
     Dosage: 200 MG, DAILY, ORAL
     Route: 048
     Dates: start: 20040625, end: 20040630
  3. MELPHALAN (MELPHALAN) [Suspect]
     Indication: NON-HODGKIN'S LYMPHOMA
     Dosage: 398 MG/M2
     Dates: start: 20040820, end: 20040820
  4. DEXAMETHASONE [Suspect]
     Indication: NON-HODGKIN'S LYMPHOMA
     Dosage: 40 MG, DAILY;  40 MG
     Dates: start: 20040527, end: 20040530
  5. DEXAMETHASONE [Suspect]
     Indication: NON-HODGKIN'S LYMPHOMA
     Dosage: 40 MG, DAILY;  40 MG
     Dates: start: 20040625, end: 20040630
  6. CISPLATIN [Suspect]
     Indication: NON-HODGKIN'S LYMPHOMA
     Dosage: 20 MG, DAILY;  19 MG, DAILY
     Dates: start: 20040527, end: 20040530
  7. CISPLATIN [Suspect]
     Indication: NON-HODGKIN'S LYMPHOMA
     Dosage: 20 MG, DAILY;  19 MG, DAILY
     Dates: start: 20040625, end: 20040630
  8. ADRIAMYCIN PFS [Suspect]
     Indication: NON-HODGKIN'S LYMPHOMA
     Dosage: 20 MG, DAILY;  76 MG, DAILY, ORAL
     Route: 048
     Dates: start: 20040527, end: 20040530
  9. ADRIAMYCIN PFS [Suspect]
     Indication: NON-HODGKIN'S LYMPHOMA
     Dosage: 20 MG, DAILY;  76 MG, DAILY, ORAL
     Route: 048
     Dates: start: 20040625, end: 20040630
  10. CYTOXAN [Suspect]
     Indication: NON-HODGKIN'S LYMPHOMA
     Dosage: 790 MG, DAILY;  768 MG, DAILY
     Dates: start: 20040527, end: 20040530
  11. CYTOXAN [Suspect]
     Indication: NON-HODGKIN'S LYMPHOMA
     Dosage: 790 MG, DAILY;  768 MG, DAILY
     Dates: start: 20040625, end: 20040630
  12. ETOPOSIDE [Suspect]
     Indication: NON-HODGKIN'S LYMPHOMA
     Dosage: 79 MG, DAILY;  77 MG, DAILY
     Dates: start: 20040527, end: 20040530
  13. ETOPOSIDE [Suspect]
     Indication: NON-HODGKIN'S LYMPHOMA
     Dosage: 79 MG, DAILY;  77 MG, DAILY
     Dates: start: 20040625, end: 20040630
  14. RITUXAN [Suspect]
     Indication: NON-HODGKIN'S LYMPHOMA
     Dosage: 720 MG, DAILY
     Dates: start: 20040625, end: 20040625
  15. RITUXAN [Suspect]
     Indication: NON-HODGKIN'S LYMPHOMA
     Dosage: 720 MG, DAILY
     Dates: start: 20040702, end: 20040702
  16. RITUXAN [Suspect]
     Indication: NON-HODGKIN'S LYMPHOMA
     Dosage: 720 MG, DAILY
     Dates: start: 20040709, end: 20040709

REACTIONS (7)
  - ACUTE RESPIRATORY DISTRESS SYNDROME [None]
  - ARRHYTHMIA [None]
  - DEATH [None]
  - HEPATIC FAILURE [None]
  - MULTI-ORGAN FAILURE [None]
  - RENAL FAILURE ACUTE [None]
  - SEPSIS [None]
